FAERS Safety Report 15044574 (Version 3)
Quarter: 2018Q3

REPORT INFORMATION
  Report Type: Spontaneous
  Country: AU (occurrence: AU)
  Receive Date: 20180621
  Receipt Date: 20180725
  Transmission Date: 20181010
  Serious: Yes (Other)
  Sender: FDA-Public Use
  Company Number: AU-AMGEN-AUSSP2018083655

PATIENT
  Sex: Female
  Weight: 64 kg

DRUGS (7)
  1. 5?FU [Suspect]
     Active Substance: FLUOROURACIL
     Indication: COLORECTAL CANCER METASTATIC
     Dosage: UNK UNK, Q2WK (FORTNIGHTLY)
     Route: 065
     Dates: start: 2013, end: 2017
  2. 5?FU [Suspect]
     Active Substance: FLUOROURACIL
     Dosage: UNK UNK, Q2WK (FORTNIGHTLY)
     Route: 065
     Dates: start: 2017
  3. VECTIBIX [Suspect]
     Active Substance: PANITUMUMAB
     Indication: COLORECTAL CANCER METASTATIC
     Dosage: 384 MG, Q2WK (6MG/KG) (400 MG/20 ML) (FORTNIGHTLY)
     Route: 042
     Dates: start: 201511
  4. FOLINIC ACID [Suspect]
     Active Substance: LEUCOVORIN
     Dosage: UNK UNK, Q2WK (FORTNIGHTLY)
     Route: 065
     Dates: start: 2017
  5. IRINOTECAN [Suspect]
     Active Substance: IRINOTECAN
     Indication: COLORECTAL CANCER METASTATIC
     Dosage: UNK UNK, Q2WK (FORTNIGHTLY)
     Route: 065
     Dates: start: 2015, end: 2017
  6. PREGABALIN. [Concomitant]
     Active Substance: PREGABALIN
     Dosage: UNK
  7. FOLINIC ACID [Suspect]
     Active Substance: LEUCOVORIN
     Indication: COLORECTAL CANCER METASTATIC
     Dosage: UNK UNK, Q2WK (FORTNIGHTLY)
     Route: 065
     Dates: start: 2013, end: 2017

REACTIONS (3)
  - Drug effect decreased [Unknown]
  - Rash [Recovered/Resolved]
  - Colorectal cancer metastatic [Not Recovered/Not Resolved]

NARRATIVE: CASE EVENT DATE: 2015
